FAERS Safety Report 18856568 (Version 5)
Quarter: 2021Q2

REPORT INFORMATION
  Report Type: Report from Study
  Country: CA (occurrence: CA)
  Receive Date: 20210207
  Receipt Date: 20210420
  Transmission Date: 20210717
  Serious: Yes (Hospitalization, Other)
  Sender: FDA-Public Use
  Company Number: CA-TAKEDA-2020TUS054404

PATIENT
  Age: 70 Year
  Sex: Female

DRUGS (5)
  1. VITAMINS NOS [Concomitant]
     Active Substance: VITAMINS
     Dosage: UNK
  2. CUVITRU [Suspect]
     Active Substance: HUMAN IMMUNOGLOBULIN G
     Dosage: 6 GRAM, 2/WEEK
     Route: 065
     Dates: start: 20200208
  3. CUVITRU [Suspect]
     Active Substance: HUMAN IMMUNOGLOBULIN G
     Indication: SECONDARY IMMUNODEFICIENCY
     Dosage: 6 GRAM, 1/WEEK
     Route: 065
     Dates: start: 20200208
  4. CUVITRU [Suspect]
     Active Substance: HUMAN IMMUNOGLOBULIN G
     Dosage: UNK
     Route: 065
  5. CUVITRU [Suspect]
     Active Substance: HUMAN IMMUNOGLOBULIN G
     Dosage: 4 GRAM, 1/WEEK
     Route: 065
     Dates: start: 20200208

REACTIONS (11)
  - Vomiting [Unknown]
  - Product dose omission issue [Unknown]
  - Hyperpyrexia [Not Recovered/Not Resolved]
  - Drug intolerance [Unknown]
  - Muscle spasms [Unknown]
  - Renal disorder [Recovering/Resolving]
  - Tooth infection [Not Recovered/Not Resolved]
  - Nausea [Unknown]
  - Drug level below therapeutic [Unknown]
  - Gastric neoplasm [Recovering/Resolving]
  - Platelet transfusion [Not Recovered/Not Resolved]

NARRATIVE: CASE EVENT DATE: 20201129
